FAERS Safety Report 4969035-4 (Version None)
Quarter: 2006Q2

REPORT INFORMATION
  Report Type: 
  Country: None (occurrence: None)
  Receive Date: 20060405
  Receipt Date: 20060322
  Transmission Date: 20061013
  Serious: Yes (Other)
  Sender: FDA-Public Use
  Company Number: 2006US-01862

PATIENT
  Age: 69 Year
  Sex: Female

DRUGS (3)
  1. ISOTRETINOIN [Suspect]
  2. IODINE-131 [Concomitant]
  3. THYROTROPIN ALFA [Concomitant]

REACTIONS (7)
  - CONJUNCTIVAL OEDEMA [None]
  - DIPLOPIA [None]
  - EXOPHTHALMOS [None]
  - EYE DISORDER [None]
  - EYELID DISORDER [None]
  - HYPOTHYROIDISM [None]
  - PHOTOPHOBIA [None]
